FAERS Safety Report 8243234 (Version 4)
Quarter: 2012Q4

REPORT INFORMATION
  Report Type: Spontaneous
  Country: JP (occurrence: None)
  Receive Date: 20111108
  Receipt Date: 20120529
  Transmission Date: 20130627
  Serious: Yes (Other)
  Sender: FDA-Public Use
  Company Number: JP-2011-11770

PATIENT
  Age: 81 Year
  Sex: Male
  Weight: 61 kg

DRUGS (5)
  1. SAMSCA [Suspect]
     Indication: CARDIAC FAILURE
     Dosage: 7.5 MG MILLIGRAM(S), BID, ORAL ; 15 MG MILLIGRAM(S), QD, ORAL
     Route: 048
     Dates: start: 20111019, end: 20111019
  2. SAMSCA [Suspect]
     Indication: CARDIAC FAILURE
     Dosage: 7.5 MG MILLIGRAM(S), BID, ORAL ; 15 MG MILLIGRAM(S), QD, ORAL
     Route: 048
     Dates: start: 20111018, end: 20111018
  3. LASIX [Concomitant]
  4. DOPAMINE HYDROCHLORIDE [Concomitant]
  5. HEPARIN AND PREPARATIONS (HEPARIN AND PREPARATIONS) [Concomitant]

REACTIONS (9)
  - Altered state of consciousness [None]
  - Hypernatraemia [None]
  - Depression [None]
  - Blood urea increased [None]
  - Blood uric acid increased [None]
  - Blood creatinine increased [None]
  - Hypovolaemia [None]
  - Somnolence [None]
  - Altered state of consciousness [None]
